FAERS Safety Report 12677325 (Version 1)
Quarter: 2016Q3

REPORT INFORMATION
  Report Type: Spontaneous
  Country: IT (occurrence: IT)
  Receive Date: 20160823
  Receipt Date: 20160823
  Transmission Date: 20161109
  Serious: Yes (Other)
  Sender: FDA-Public Use
  Company Number: IT-PFIZER INC-2016391511

PATIENT
  Age: 50 Year
  Sex: Female

DRUGS (2)
  1. XANAX [Suspect]
     Active Substance: ALPRAZOLAM
     Indication: DEPRESSION
     Dosage: 7 MG, DAILY
     Route: 048
     Dates: start: 20130701
  2. HALCION [Suspect]
     Active Substance: TRIAZOLAM
     Indication: DEPRESSION
     Dosage: 2 MG, DAILY
     Route: 048
     Dates: start: 20130701

REACTIONS (4)
  - Intentional overdose [Recovered/Resolved]
  - Intentional self-injury [Recovered/Resolved]
  - Impulsive behaviour [Recovered/Resolved]
  - Toxicity to various agents [Recovered/Resolved]

NARRATIVE: CASE EVENT DATE: 20160806
